FAERS Safety Report 9447936 (Version 1)
Quarter: 2013Q3

REPORT INFORMATION
  Report Type: Spontaneous
  Country: NE (occurrence: NE)
  Receive Date: 20130808
  Receipt Date: 20130808
  Transmission Date: 20140515
  Serious: Yes (Death, Other)
  Sender: FDA-Public Use
  Company Number: PHHY2012NE118288

PATIENT
  Age: 56 Year
  Sex: Male

DRUGS (3)
  1. GLIVEC [Suspect]
     Indication: CHRONIC MYELOID LEUKAEMIA
     Dosage: 400 MG, UNK
     Route: 048
     Dates: start: 20090507
  2. SPRYCEL//DASATINIB [Concomitant]
     Dosage: UNK UKN, UNK
     Dates: start: 201306
  3. SPRYCEL//DASATINIB [Concomitant]
     Dosage: UNK

REACTIONS (10)
  - Death [Fatal]
  - Chronic myeloid leukaemia [Unknown]
  - Malignant neoplasm progression [Unknown]
  - Chronic myeloid leukaemia transformation [Unknown]
  - Anaemia [Not Recovered/Not Resolved]
  - Clonal evolution [Unknown]
  - Neutrophil count decreased [Unknown]
  - Pneumonia [Unknown]
  - Pyrexia [Unknown]
  - Pancytopenia [Unknown]
